FAERS Safety Report 7358426-2 (Version None)
Quarter: 2011Q1

REPORT INFORMATION
  Report Type: 
  Country: None (occurrence: None)
  Receive Date: 20110314
  Receipt Date: 20110314
  Transmission Date: 20110831
  Serious: Yes (Hospitalization)
  Sender: FDA-Public Use
  Company Number: None

PATIENT
  Sex: Female
  Weight: 24 kg

DRUGS (3)
  1. OXACILLIN [Suspect]
     Indication: STAPHYLOCOCCAL ABSCESS
     Dosage: 1GM IV IV
     Route: 042
     Dates: start: 20110207, end: 20110227
  2. OXACILLIN [Suspect]
     Indication: CELLULITIS
     Dosage: 1GM IV IV
     Route: 042
     Dates: start: 20110207, end: 20110227
  3. OXACILLIN [Suspect]

REACTIONS (1)
  - HEPATITIS [None]
